FAERS Safety Report 7290757-7 (Version None)
Quarter: 2011Q1

REPORT INFORMATION
  Report Type: 
  Country: None (occurrence: None)
  Receive Date: 20110214
  Receipt Date: 20110209
  Transmission Date: 20110831
  Serious: Yes (Other)
  Sender: FDA-Public Use
  Company Number: US-PFIZER INC-2011029435

PATIENT
  Sex: Female
  Weight: 83.447 kg

DRUGS (6)
  1. CADUET [Suspect]
     Indication: BLOOD CHOLESTEROL INCREASED
     Dosage: AMLODIPINE BESILATE 5MG, ATORVASTATIN CALCIUM 10MG
  2. POTASSIUM [Concomitant]
     Dosage: TWO TABLETS AT 8 MEQ, UNKNOWN FREQUENCY
  3. PREMARIN [Concomitant]
     Indication: HORMONE REPLACEMENT THERAPY
     Dosage: UNK
     Route: 067
  4. HYDROCHLOROTHIAZIDE [Concomitant]
     Indication: DIURETIC THERAPY
     Dosage: 25 MG, 1X/DAY
  5. LEVOTHYROXINE [Concomitant]
     Indication: HYPOTHYROIDISM
     Dosage: UNK
  6. CADUET [Suspect]
     Indication: HYPERTENSION

REACTIONS (3)
  - CYSTITIS [None]
  - BLOOD URINE PRESENT [None]
  - DYSURIA [None]
